FAERS Safety Report 23492257 (Version 1)
Quarter: 2024Q1

REPORT INFORMATION
  Report Type: Report from Study
  Country: US (occurrence: US)
  Receive Date: 20240207
  Receipt Date: 20240207
  Transmission Date: 20240410
  Serious: No
  Sender: FDA-Public Use
  Company Number: US-ORG100014127-2023000721

PATIENT
  Age: 39 Year
  Sex: Female

DRUGS (10)
  1. LYSODREN [Suspect]
     Active Substance: MITOTANE
     Indication: Adrenocortical carcinoma
     Dosage: 1 TABLET TWICE DAILY FOR 3 DAYS
     Route: 048
     Dates: start: 20230522, end: 20230524
  2. LYSODREN [Suspect]
     Active Substance: MITOTANE
     Indication: Adrenocortical carcinoma
     Dosage: 2 TABLETS TWICE DAILY FOR 3 DAYS
     Route: 048
     Dates: start: 20230525, end: 20230527
  3. LYSODREN [Suspect]
     Active Substance: MITOTANE
     Indication: Adrenocortical carcinoma
     Dosage: 3 TABLETS TWICE DAILY FOR 2 WEEKS
     Route: 048
     Dates: start: 20230528, end: 20230610
  4. LYSODREN [Suspect]
     Active Substance: MITOTANE
     Indication: Adrenocortical carcinoma
     Dosage: 4 TABLETS TWICE DAILY FOR 2 WEEKS
     Route: 048
     Dates: start: 20230611, end: 20230624
  5. LYSODREN [Suspect]
     Active Substance: MITOTANE
     Indication: Adrenocortical carcinoma
     Route: 048
     Dates: start: 20230625
  6. LYSODREN [Suspect]
     Active Substance: MITOTANE
     Indication: Adrenocortical carcinoma
     Dosage: 04 TABLETS (2000 MG) TWICE DAILY FOR 4 MORE DAYS.
     Dates: start: 2023
  7. LYSODREN [Suspect]
     Active Substance: MITOTANE
     Indication: Adrenocortical carcinoma
     Dosage: 05 TABLETS (2500 MG) TWICE DAILY.
     Dates: start: 2023
  8. Jakafi tablet 20 mg [Concomitant]
     Indication: Product used for unknown indication
  9. Paxil tablet 40 mg [Concomitant]
     Indication: Product used for unknown indication
  10. Vitamin D3 tablet 5000UNIT [Concomitant]
     Indication: Product used for unknown indication

REACTIONS (2)
  - Nausea [Not Recovered/Not Resolved]
  - Product use complaint [Not Recovered/Not Resolved]

NARRATIVE: CASE EVENT DATE: 20230101
